FAERS Safety Report 11614395 (Version 2)
Quarter: 2015Q4

REPORT INFORMATION
  Report Type: Report from Study
  Country: FR (occurrence: FR)
  Receive Date: 20151009
  Receipt Date: 20151021
  Transmission Date: 20160304
  Serious: Yes (Death, Hospitalization, Other)
  Sender: FDA-Public Use
  Company Number: FR-BRISTOL-MYERS SQUIBB COMPANY-BMS-2015-066060

PATIENT
  Age: 75 Year
  Sex: Female
  Weight: 51 kg

DRUGS (1)
  1. NIVOLUMAB [Suspect]
     Active Substance: NIVOLUMAB
     Indication: NON-SMALL CELL LUNG CANCER
     Dosage: 153 MG, UNK
     Route: 065
     Dates: start: 201506

REACTIONS (4)
  - Stress cardiomyopathy [Fatal]
  - Myocardial infarction [Unknown]
  - Coronary artery disease [Unknown]
  - Tachycardia [Unknown]

NARRATIVE: CASE EVENT DATE: 20150920
